FAERS Safety Report 9236818 (Version 1)
Quarter: 2013Q2

REPORT INFORMATION
  Report Type: Spontaneous
  Country: US (occurrence: US)
  Receive Date: 20130417
  Receipt Date: 20130417
  Transmission Date: 20140414
  Serious: Yes (Other)
  Sender: FDA-Public Use
  Company Number: US-ASTRAZENECA-2013SE23668

PATIENT
  Age: 52 Year
  Sex: Male
  Weight: 77.1 kg

DRUGS (10)
  1. NEXIUM [Suspect]
     Indication: BARRETT^S OESOPHAGUS
     Route: 048
  2. NEXIUM [Suspect]
     Indication: BARRETT^S OESOPHAGUS
     Route: 048
     Dates: start: 2012
  3. LISINOPRIL [Suspect]
     Route: 048
     Dates: start: 2007
  4. CRESTOR [Suspect]
     Indication: BLOOD CHOLESTEROL ABNORMAL
     Route: 048
     Dates: start: 201211
  5. VITAMIN D [Concomitant]
     Indication: CARDIAC DISORDER
     Route: 048
     Dates: start: 2007
  6. PLAVIX [Concomitant]
     Indication: CARDIAC DISORDER
     Route: 048
     Dates: start: 2007
  7. CARVEDILOL [Concomitant]
     Indication: CARDIAC DISORDER
     Route: 048
     Dates: start: 2007
  8. ASPRIN [Concomitant]
     Indication: CARDIAC DISORDER
     Route: 048
     Dates: start: 2007
  9. FISH OIL [Concomitant]
     Indication: CARDIAC DISORDER
     Route: 048
     Dates: start: 2007
  10. VITAMIN B12 [Concomitant]
     Indication: CARDIAC DISORDER
     Dosage: DAILY
     Route: 048
     Dates: start: 2007

REACTIONS (4)
  - Cardiac aneurysm [Unknown]
  - Myocardial infarction [Unknown]
  - Blood cholesterol increased [Unknown]
  - Off label use [Unknown]
